FAERS Safety Report 6600752-6 (Version None)
Quarter: 2010Q1

REPORT INFORMATION
  Report Type: 
  Country: None (occurrence: None)
  Receive Date: 20100223
  Receipt Date: 20100223
  Transmission Date: 20100710
  Serious: Yes (Disabling)
  Sender: FDA-Public Use
  Company Number: None

PATIENT
  Age: 44 Year
  Sex: Female
  Weight: 61.2356 kg

DRUGS (1)
  1. LEVAQUIN [Suspect]
     Indication: BRONCHITIS
     Dosage: 1 TAB ONCE A DAY PO
     Route: 048
     Dates: start: 20100212, end: 20100219

REACTIONS (6)
  - ARTHROPATHY [None]
  - HYPOREFLEXIA [None]
  - JOINT INJURY [None]
  - MOTOR DYSFUNCTION [None]
  - NEUROPATHY PERIPHERAL [None]
  - SWELLING [None]
